FAERS Safety Report 10646523 (Version 3)
Quarter: 2015Q2

REPORT INFORMATION
  Report Type: Spontaneous
  Country: US (occurrence: US)
  Receive Date: 20141211
  Receipt Date: 20150616
  Transmission Date: 20150821
  Serious: Yes (Hospitalization, Other)
  Sender: FDA-Public Use
  Company Number: US-BAYER-2014-182497

PATIENT
  Age: 28 Year
  Sex: Female

DRUGS (3)
  1. METHADONE [Concomitant]
     Active Substance: METHADONE HYDROCHLORIDE
     Indication: DRUG DEPENDENCE
     Dosage: 214 MG, UNK
     Dates: start: 201106
  2. METHADONE [Concomitant]
     Active Substance: METHADONE HYDROCHLORIDE
     Indication: CONTRACEPTION
  3. MIRENA [Suspect]
     Active Substance: LEVONORGESTREL
     Indication: CONTRACEPTION
     Dosage: 20 MCG/24HR, CONT
     Route: 015
     Dates: start: 20100303, end: 20110627

REACTIONS (11)
  - Pelvic adhesions [None]
  - Injury [None]
  - Device dislocation [None]
  - Genital haemorrhage [None]
  - Pregnancy with contraceptive device [None]
  - Abdominal pain [None]
  - Uterine perforation [None]
  - Abortion induced [None]
  - Drug ineffective [None]
  - Device issue [None]
  - Pelvic pain [None]

NARRATIVE: CASE EVENT DATE: 20101209
